FAERS Safety Report 4973040-1 (Version None)
Quarter: 2006Q2

REPORT INFORMATION
  Report Type: 
  Country: None (occurrence: None)
  Receive Date: 20060414
  Receipt Date: 20060411
  Transmission Date: 20061013
  Serious: Yes (Life-Threatening)
  Sender: FDA-Public Use
  Company Number: 2006AP01712

PATIENT
  Age: 31177 Day
  Sex: Female
  Weight: 43.5 kg

DRUGS (8)
  1. CRESTOR [Suspect]
     Indication: HYPERCHOLESTEROLAEMIA
     Route: 048
     Dates: start: 20060112, end: 20060125
  2. CRESTOR [Suspect]
     Route: 048
     Dates: start: 20060209
  3. ASPIRIN [Concomitant]
     Indication: MYOCARDIAL INFARCTION
     Route: 048
     Dates: start: 20040130
  4. PANALDINE [Concomitant]
     Indication: MYOCARDIAL INFARCTION
     Route: 048
     Dates: start: 20040130
  5. BLOPRESS [Concomitant]
     Indication: HYPERTENSION
     Route: 048
     Dates: start: 20040130
  6. GASTER D [Concomitant]
     Indication: PROPHYLAXIS AGAINST GASTROINTESTINAL ULCER
     Route: 048
     Dates: start: 20040130
  7. FRANDOL [Concomitant]
     Indication: ANGINA PECTORIS
     Dates: start: 20040130
  8. LIVALO [Concomitant]
     Dosage: PAST DRUG HISTORY

REACTIONS (1)
  - SICK SINUS SYNDROME [None]
